FAERS Safety Report 12351076 (Version 1)
Quarter: 2016Q2

REPORT INFORMATION
  Report Type: Spontaneous
  Country: US (occurrence: None)
  Receive Date: 20160509
  Receipt Date: 20160509
  Transmission Date: 20160815
  Serious: Yes (Hospitalization)
  Sender: FDA-Public Use
  Company Number: None

PATIENT
  Age: 93 Year
  Sex: Male

DRUGS (1)
  1. ZYTIGA [Suspect]
     Active Substance: ABIRATERONE ACETATE
     Indication: PROSTATE CANCER
     Route: 048
     Dates: start: 20160331, end: 20160429

REACTIONS (5)
  - Pneumonia [None]
  - Muscular weakness [None]
  - Fatigue [None]
  - Headache [None]
  - Peripheral swelling [None]

NARRATIVE: CASE EVENT DATE: 20160429
